FAERS Safety Report 26059224 (Version 1)
Quarter: 2025Q4

REPORT INFORMATION
  Report Type: Spontaneous
  Country: EU (occurrence: EU)
  Receive Date: 20251118
  Receipt Date: 20251118
  Transmission Date: 20260119
  Serious: Yes (Life-Threatening, Hospitalization, Other)
  Sender: MYLAN
  Company Number: EU-MYLANLABS-HQ4041603SEP2002

PATIENT
  Age: 32 Year
  Sex: Male

DRUGS (48)
  1. VENLAFAXINE HYDROCHLORIDE [Suspect]
     Active Substance: VENLAFAXINE HYDROCHLORIDE
     Indication: Affective disorder
     Dosage: 300 MG, 1X/DAY
     Dates: end: 20020103
  2. VENLAFAXINE HYDROCHLORIDE [Suspect]
     Active Substance: VENLAFAXINE HYDROCHLORIDE
     Dosage: 300 MG, 1X/DAY
     Route: 048
     Dates: end: 20020103
  3. VENLAFAXINE HYDROCHLORIDE [Suspect]
     Active Substance: VENLAFAXINE HYDROCHLORIDE
     Dosage: 300 MG, 1X/DAY
     Route: 048
     Dates: end: 20020103
  4. VENLAFAXINE HYDROCHLORIDE [Suspect]
     Active Substance: VENLAFAXINE HYDROCHLORIDE
     Dosage: 300 MG, 1X/DAY
     Dates: end: 20020103
  5. GEODON [Suspect]
     Active Substance: ZIPRASIDONE HYDROCHLORIDE\ZIPRASIDONE MESYLATE
     Indication: Affective disorder
     Dosage: 360 MILLIGRAM, QD
     Dates: end: 20020103
  6. GEODON [Suspect]
     Active Substance: ZIPRASIDONE HYDROCHLORIDE\ZIPRASIDONE MESYLATE
     Indication: Schizoaffective disorder
     Dosage: 360 MILLIGRAM, QD
     Dates: end: 20020103
  7. GEODON [Suspect]
     Active Substance: ZIPRASIDONE HYDROCHLORIDE\ZIPRASIDONE MESYLATE
     Dosage: 360 MILLIGRAM, QD
     Route: 048
     Dates: end: 20020103
  8. GEODON [Suspect]
     Active Substance: ZIPRASIDONE HYDROCHLORIDE\ZIPRASIDONE MESYLATE
     Dosage: 360 MILLIGRAM, QD
     Route: 048
     Dates: end: 20020103
  9. GEODON [Suspect]
     Active Substance: ZIPRASIDONE HYDROCHLORIDE\ZIPRASIDONE MESYLATE
     Dosage: 120 MILLIGRAM
  10. GEODON [Suspect]
     Active Substance: ZIPRASIDONE HYDROCHLORIDE\ZIPRASIDONE MESYLATE
     Dosage: 120 MILLIGRAM
  11. GEODON [Suspect]
     Active Substance: ZIPRASIDONE HYDROCHLORIDE\ZIPRASIDONE MESYLATE
     Dosage: 120 MILLIGRAM
     Route: 048
  12. GEODON [Suspect]
     Active Substance: ZIPRASIDONE HYDROCHLORIDE\ZIPRASIDONE MESYLATE
     Dosage: 120 MILLIGRAM
     Route: 048
  13. IMOVANE [Concomitant]
     Active Substance: ZOPICLONE
     Indication: Product used for unknown indication
     Dosage: ^7.5 MG TABLET^
  14. IMOVANE [Concomitant]
     Active Substance: ZOPICLONE
     Dosage: ^7.5 MG TABLET^
     Route: 065
  15. IMOVANE [Concomitant]
     Active Substance: ZOPICLONE
     Dosage: ^7.5 MG TABLET^
     Route: 065
  16. IMOVANE [Concomitant]
     Active Substance: ZOPICLONE
     Dosage: ^7.5 MG TABLET^
  17. RAMIPRIL [Concomitant]
     Active Substance: RAMIPRIL
     Indication: Product used for unknown indication
     Dosage: ^2.5 MG TABLET^
  18. RAMIPRIL [Concomitant]
     Active Substance: RAMIPRIL
     Dosage: ^2.5 MG TABLET^
     Route: 048
  19. RAMIPRIL [Concomitant]
     Active Substance: RAMIPRIL
     Dosage: ^2.5 MG TABLET^
     Route: 048
  20. RAMIPRIL [Concomitant]
     Active Substance: RAMIPRIL
     Dosage: ^2.5 MG TABLET^
  21. METOPROLOL [Concomitant]
     Active Substance: METOPROLOL
     Indication: Product used for unknown indication
     Dosage: ^50 MG TABLET^
  22. METOPROLOL [Concomitant]
     Active Substance: METOPROLOL
     Dosage: ^50 MG TABLET^
     Route: 065
  23. METOPROLOL [Concomitant]
     Active Substance: METOPROLOL
     Dosage: ^50 MG TABLET^
     Route: 065
  24. METOPROLOL [Concomitant]
     Active Substance: METOPROLOL
     Dosage: ^50 MG TABLET^
  25. DIGOXIN [Concomitant]
     Active Substance: DIGOXIN
     Indication: Product used for unknown indication
     Dosage: ^0.25 MG^ (FREQUENCY UNSPECIFIED)
  26. DIGOXIN [Concomitant]
     Active Substance: DIGOXIN
     Dosage: ^0.25 MG^ (FREQUENCY UNSPECIFIED)
     Route: 048
  27. DIGOXIN [Concomitant]
     Active Substance: DIGOXIN
     Dosage: ^0.25 MG^ (FREQUENCY UNSPECIFIED)
     Route: 048
  28. DIGOXIN [Concomitant]
     Active Substance: DIGOXIN
     Dosage: ^0.25 MG^ (FREQUENCY UNSPECIFIED)
  29. SPIRONOLACTONE [Concomitant]
     Active Substance: SPIRONOLACTONE
     Dosage: ^25 MG TABLET^
  30. SPIRONOLACTONE [Concomitant]
     Active Substance: SPIRONOLACTONE
     Dosage: ^25 MG TABLET^
     Route: 048
  31. SPIRONOLACTONE [Concomitant]
     Active Substance: SPIRONOLACTONE
     Dosage: ^25 MG TABLET^
     Route: 048
  32. SPIRONOLACTONE [Concomitant]
     Active Substance: SPIRONOLACTONE
     Dosage: ^25 MG TABLET^
  33. FUROSEMIDE [Concomitant]
     Active Substance: FUROSEMIDE
     Indication: Product used for unknown indication
     Dosage: ^40 MG TABLET^
  34. FUROSEMIDE [Concomitant]
     Active Substance: FUROSEMIDE
     Dosage: ^40 MG TABLET^
     Route: 065
  35. FUROSEMIDE [Concomitant]
     Active Substance: FUROSEMIDE
     Dosage: ^40 MG TABLET^
     Route: 065
  36. FUROSEMIDE [Concomitant]
     Active Substance: FUROSEMIDE
     Dosage: ^40 MG TABLET^
  37. CARVEDILOL [Concomitant]
     Active Substance: CARVEDILOL
     Dosage: UNK
  38. CARVEDILOL [Concomitant]
     Active Substance: CARVEDILOL
     Dosage: UNK
     Route: 048
  39. CARVEDILOL [Concomitant]
     Active Substance: CARVEDILOL
     Dosage: UNK
     Route: 048
  40. CARVEDILOL [Concomitant]
     Active Substance: CARVEDILOL
     Dosage: UNK
  41. DIAZEPAM [Concomitant]
     Active Substance: DIAZEPAM
     Dosage: UNK
  42. DIAZEPAM [Concomitant]
     Active Substance: DIAZEPAM
     Dosage: UNK
     Route: 048
  43. DIAZEPAM [Concomitant]
     Active Substance: DIAZEPAM
     Dosage: UNK
     Route: 048
  44. DIAZEPAM [Concomitant]
     Active Substance: DIAZEPAM
     Dosage: UNK
  45. OXAZEPAM [Concomitant]
     Active Substance: OXAZEPAM
     Dosage: UNK
  46. OXAZEPAM [Concomitant]
     Active Substance: OXAZEPAM
     Dosage: UNK
     Route: 048
  47. OXAZEPAM [Concomitant]
     Active Substance: OXAZEPAM
     Dosage: UNK
     Route: 048
  48. OXAZEPAM [Concomitant]
     Active Substance: OXAZEPAM
     Dosage: UNK

REACTIONS (30)
  - Cardiomyopathy [Not Recovered/Not Resolved]
  - Shock [Unknown]
  - Nausea [Unknown]
  - Vomiting [Unknown]
  - Diarrhoea [Unknown]
  - Decreased appetite [Unknown]
  - Cardiac failure [Not Recovered/Not Resolved]
  - Liver function test abnormal [Recovering/Resolving]
  - Blood creatinine increased [Recovered/Resolved]
  - Gastric infection [Not Recovered/Not Resolved]
  - Hypertension [Unknown]
  - Infection [Not Recovered/Not Resolved]
  - Cardiogenic shock [Not Recovered/Not Resolved]
  - Hypotension [Not Recovered/Not Resolved]
  - Urine output decreased [Not Recovered/Not Resolved]
  - Bacterial infection [Not Recovered/Not Resolved]
  - Blood sodium abnormal [Not Recovered/Not Resolved]
  - Left ventricular dysfunction [Not Recovered/Not Resolved]
  - Psychotic disorder [Not Recovered/Not Resolved]
  - Syncope [Not Recovered/Not Resolved]
  - Viral infection [Not Recovered/Not Resolved]
  - Dehydration [Not Recovered/Not Resolved]
  - Respiratory rate increased [Unknown]
  - Sepsis [Unknown]
  - Cough [Unknown]
  - Acute kidney injury [Unknown]
  - Hepatic function abnormal [Unknown]
  - Chest pain [Unknown]
  - Dyspnoea [Unknown]
  - Weight decreased [Unknown]

NARRATIVE: CASE EVENT DATE: 20010101
